FAERS Safety Report 7760598-2 (Version None)
Quarter: 2011Q3

REPORT INFORMATION
  Report Type: 
  Country: None (occurrence: None)
  Receive Date: 20110919
  Receipt Date: 20101112
  Transmission Date: 20111222
  Serious: No
  Sender: FDA-Public Use
  Company Number: US-BAYER-2011-078075

PATIENT
  Age: 80 Year
  Sex: Female
  Weight: 72 kg

DRUGS (6)
  1. GABAPENTIN [Concomitant]
  2. PIROXICAM [Concomitant]
  3. ALEVE (CAPLET) [Suspect]
     Indication: ARTHRITIS
     Dosage: 2 CAPLETS EVERY MORNING - 130 COUNT
     Route: 048
     Dates: start: 20100101
  4. LISINOPRIL [Concomitant]
  5. ATENOLOL [Concomitant]
  6. HYDROCHLOROTHIAZIDE [Concomitant]

REACTIONS (1)
  - INCORRECT DOSE ADMINISTERED [None]
